FAERS Safety Report 4607404-2 (Version None)
Quarter: 2005Q1

REPORT INFORMATION
  Report Type: 
  Country: None (occurrence: None)
  Receive Date: 20050309
  Receipt Date: 20050225
  Transmission Date: 20050727
  Serious: Yes (Hospitalization)
  Sender: FDA-Public Use
  Company Number: HQWYE610525FEB05

PATIENT
  Age: 82 Year
  Sex: Female

DRUGS (7)
  1. TAZOCIN (PEPERACILLIN/ TAZOBACTAM, INJECTION) [Suspect]
     Indication: SEPSIS
     Dosage: 2.5 G 2X PER 1 DAY
     Route: 041
     Dates: start: 20040925, end: 20041001
  2. ASPARA K (ASPARTATE POTASSIUM) [Concomitant]
  3. GLUCOSE (GLUCOSE) [Concomitant]
  4. XYLOCAINE [Concomitant]
  5. MEXITIL [Concomitant]
  6. HABEKACIN (ARBEKACIN) [Concomitant]
  7. DIOVAN [Concomitant]

REACTIONS (2)
  - CONDITION AGGRAVATED [None]
  - SEPSIS [None]
